FAERS Safety Report 6101201-7 (Version None)
Quarter: 2009Q1

REPORT INFORMATION
  Report Type: 
  Country: None (occurrence: None)
  Receive Date: 20090304
  Receipt Date: 20090225
  Transmission Date: 20090719
  Serious: Yes (Hospitalization, Other)
  Sender: FDA-Public Use
  Company Number: US-ELI_LILLY_AND_COMPANY-US200812002385

PATIENT
  Sex: Female
  Weight: 122.45 kg

DRUGS (19)
  1. BYETTA [Suspect]
     Dates: start: 20071201
  2. BYETTA [Suspect]
     Dosage: 5 UG, UNK
  3. BYETTA [Suspect]
     Dosage: 10 UG, 2/D
     Route: 065
     Dates: end: 20080722
  4. BYETTA [Suspect]
     Dosage: 10 UG, 2/D
     Route: 058
     Dates: start: 20080818, end: 20080820
  5. COREG [Concomitant]
     Dosage: UNK, DAILY (1/D)
  6. ACTOS [Concomitant]
     Dosage: 30 MG, EACH EVENING
  7. GLUCOPHAGE [Concomitant]
     Dosage: 500 MG, DAILY (1/D)
  8. PROZAC [Concomitant]
     Dosage: 20 MG, DAILY (1/D)
  9. ZETIA [Concomitant]
     Dosage: 20 MG, DAILY (1/D)
  10. PRINIVIL [Concomitant]
     Dosage: 40 MG, UNK
  11. LYRICA [Concomitant]
     Dosage: 75 MG, 2/D
  12. ASPIRIN                                 /SCH/ [Concomitant]
     Dosage: 81 MG, DAILY (1/D)
  13. REGLAN [Concomitant]
     Dosage: 5 MG, EACH EVENING
  14. CELEBREX [Concomitant]
     Dosage: 200 MG, EACH EVENING
  15. TRICOR [Concomitant]
     Dosage: 145 MG, EACH EVENING
  16. PRILOSEC [Concomitant]
     Dosage: 20 MG, EACH EVENING
  17. LIPITOR [Concomitant]
     Dosage: 80 MG, EACH EVENING
  18. BISOPROLOL FUMARATE [Concomitant]
  19. LISINOPRIL [Concomitant]
     Dosage: UNK, UNKNOWN
     Route: 065

REACTIONS (9)
  - ANAEMIA [None]
  - ASTHENIA [None]
  - BLOOD BILIRUBIN INCREASED [None]
  - DYSPNOEA [None]
  - LIVER FUNCTION TEST ABNORMAL [None]
  - PANCREATITIS [None]
  - UNRESPONSIVE TO STIMULI [None]
  - URINARY TRACT INFECTION [None]
  - WEIGHT DECREASED [None]
